FAERS Safety Report 10035424 (Version 1)
Quarter: 2014Q1

REPORT INFORMATION
  Report Type: Spontaneous
  Country: US (occurrence: US)
  Receive Date: 20140325
  Receipt Date: 20140325
  Transmission Date: 20141002
  Serious: Yes (Other)
  Sender: FDA-Public Use
  Company Number: US-TEVA-470228USA

PATIENT
  Sex: Female
  Weight: 81.72 kg

DRUGS (2)
  1. FENTORA [Suspect]
     Indication: PAIN
     Dosage: 800 MICROGRAM DAILY;
     Dates: start: 2013, end: 20140318
  2. FENTANYL [Concomitant]
     Indication: PAIN
     Route: 062

REACTIONS (11)
  - Withdrawal syndrome [Not Recovered/Not Resolved]
  - Nausea [Not Recovered/Not Resolved]
  - Vomiting [Not Recovered/Not Resolved]
  - Diarrhoea [Not Recovered/Not Resolved]
  - Feeling of body temperature change [Not Recovered/Not Resolved]
  - Chills [Not Recovered/Not Resolved]
  - Hyperhidrosis [Not Recovered/Not Resolved]
  - Tremor [Not Recovered/Not Resolved]
  - Headache [Not Recovered/Not Resolved]
  - Retching [Not Recovered/Not Resolved]
  - Off label use [Not Recovered/Not Resolved]
